FAERS Safety Report 9454298 (Version 1)
Quarter: 2013Q3

REPORT INFORMATION
  Report Type: Spontaneous
  Country: US (occurrence: None)
  Receive Date: 20130809
  Receipt Date: 20130809
  Transmission Date: 20140515
  Serious: Yes (Other)
  Sender: FDA-Public Use
  Company Number: None

PATIENT
  Age: 23 Year
  Sex: Male
  Weight: 104.33 kg

DRUGS (1)
  1. MEFLOQUINE [Suspect]
     Indication: MALARIA PROPHYLAXIS
     Dosage: 1 PILL TAKEN BY MOUTH
     Route: 048
     Dates: start: 19930101, end: 19930102

REACTIONS (15)
  - Anger [None]
  - Condition aggravated [None]
  - Depression [None]
  - Anxiety [None]
  - Mood altered [None]
  - Poor quality sleep [None]
  - Disturbance in attention [None]
  - Confusional state [None]
  - Nightmare [None]
  - Social phobia [None]
  - Hypervigilance [None]
  - Restlessness [None]
  - Memory impairment [None]
  - Tinnitus [None]
  - Balance disorder [None]
